FAERS Safety Report 8959515 (Version 1)
Quarter: 2012Q4

REPORT INFORMATION
  Report Type: 
  Country: BR (occurrence: BR)
  Receive Date: 20121212
  Receipt Date: 20121212
  Transmission Date: 20130627
  Serious: Yes (Hospitalization)
  Sender: FDA-Public Use
  Company Number: BR-SANOFI-AVENTIS-2012SA088704

PATIENT
  Sex: Male
  Weight: 1.85 kg

DRUGS (2)
  1. LANTUS [Suspect]
     Indication: DRUG EXPOSURE VIA MOTHER
     Dosage: Form: syringe,
Dose: 52 IU in morning and 20 IU at night
     Route: 064
     Dates: start: 2012, end: 20120921
  2. HUMALOG [Concomitant]
     Indication: TYPE I DIABETES MELLITUS
     Route: 064
     Dates: start: 2012, end: 20120921

REACTIONS (2)
  - Premature baby [Unknown]
  - Foetal exposure during pregnancy [Unknown]
